FAERS Safety Report 23306885 (Version 4)
Quarter: 2024Q1

REPORT INFORMATION
  Report Type: Spontaneous
  Country: JP (occurrence: JP)
  Receive Date: 20231218
  Receipt Date: 20240219
  Transmission Date: 20240410
  Serious: Yes (Death, Hospitalization, Other)
  Sender: FDA-Public Use
  Company Number: JP-ASTELLAS-2023JP013878

PATIENT
  Age: 75 Year
  Sex: Male

DRUGS (4)
  1. PADCEV [Suspect]
     Active Substance: ENFORTUMAB VEDOTIN-EJFV
     Indication: Metastatic carcinoma of the bladder
     Dosage: 1.25 MG/KG (90 MG), ONCE WEEKLY
     Route: 041
     Dates: start: 20231130, end: 20231207
  2. GEMCITABINE [Concomitant]
     Active Substance: GEMCITABINE
     Indication: Bladder cancer
     Dosage: UNK UNK, UNKNOWN FREQ., 4 COURSES
     Route: 065
     Dates: start: 20220414
  3. CISPLATIN [Concomitant]
     Active Substance: CISPLATIN
     Indication: Bladder cancer
     Dosage: UNK UNK, UNKNOWN FREQ., 4 COURSES
     Route: 065
     Dates: start: 20220414
  4. BAVENCIO [Concomitant]
     Active Substance: AVELUMAB
     Indication: Bladder cancer
     Dosage: UNK UNK, UNKNOWN FREQ.
     Route: 065
     Dates: start: 20221003

REACTIONS (3)
  - Febrile neutropenia [Fatal]
  - White blood cell count decreased [Fatal]
  - Hyperbilirubinaemia [Unknown]

NARRATIVE: CASE EVENT DATE: 20231207
